FAERS Safety Report 4809296-5 (Version None)
Quarter: 2005Q4

REPORT INFORMATION
  Report Type: 
  Country: None (occurrence: None)
  Receive Date: 20051021
  Receipt Date: 20051017
  Transmission Date: 20060501
  Serious: Yes (Other)
  Sender: FDA-Public Use
  Company Number: 200514171BCC

PATIENT
  Sex: Female
  Weight: 92.5338 kg

DRUGS (1)
  1. ALEVE [Suspect]
     Indication: ARTHRITIS
     Dosage: SEE IMAGE
     Route: 048
     Dates: start: 20020101

REACTIONS (2)
  - CONDITION AGGRAVATED [None]
  - HYPERTENSION [None]
